FAERS Safety Report 17791223 (Version 2)
Quarter: 2023Q1

REPORT INFORMATION
  Report Type: Report from Study
  Country: AU (occurrence: AU)
  Receive Date: 20200515
  Receipt Date: 20230113
  Transmission Date: 20230417
  Serious: Yes (Other)
  Sender: FDA-Public Use
  Company Number: AU-JNJFOC-20180924162

PATIENT
  Age: 30 Year
  Sex: Female

DRUGS (2)
  1. STELARA [Suspect]
     Active Substance: USTEKINUMAB
     Indication: Crohn^s disease
     Route: 058
  2. STELARA [Suspect]
     Active Substance: USTEKINUMAB

REACTIONS (4)
  - Crohn^s disease [Recovered/Resolved]
  - Fatigue [Recovered/Resolved]
  - Nasopharyngitis [Recovered/Resolved]
  - Therapy cessation [Unknown]

NARRATIVE: CASE EVENT DATE: 20180101
